FAERS Safety Report 10239602 (Version 1)
Quarter: 2014Q2

REPORT INFORMATION
  Report Type: Not Available
  Country: GB (occurrence: GB)
  Receive Date: 20140616
  Receipt Date: 20140616
  Transmission Date: 20141212
  Serious: Yes (Other)
  Sender: FDA-Public Use
  Company Number: GB-NAPPMUNDI-GBR-2014-0018722

PATIENT
  Age: 27 Year
  Sex: Male
  Weight: 141 kg

DRUGS (3)
  1. OXYCODONE HYDROCHLORIDE [Suspect]
     Indication: PRODUCT USED FOR UNKNOWN INDICATION
     Dosage: 40 MG, Q12H
     Route: 048
     Dates: start: 20140515
  2. FLUOXETINE [Concomitant]
  3. LORATADINE [Concomitant]

REACTIONS (6)
  - Eye pain [Unknown]
  - Neck pain [Unknown]
  - Vision blurred [Unknown]
  - Dysuria [Not Recovered/Not Resolved]
  - Headache [Unknown]
  - Tension headache [Recovering/Resolving]
